FAERS Safety Report 6998136-4 (Version None)
Quarter: 2010Q3

REPORT INFORMATION
  Report Type: 
  Country: None (occurrence: None)
  Receive Date: 20100920
  Receipt Date: 20100409
  Transmission Date: 20110219
  Serious: Yes (Other)
  Sender: FDA-Public Use
  Company Number: US-ASTRAZENECA-2009UW07550

PATIENT
  Age: 41 Year
  Sex: Male
  Weight: 113.4 kg

DRUGS (6)
  1. SEROQUEL [Suspect]
     Indication: DEPRESSION
     Route: 048
     Dates: start: 20060101, end: 20070101
  2. PAXIL [Concomitant]
  3. HALDOL [Concomitant]
     Dates: start: 19960101, end: 19990101
  4. RISPERDAL [Concomitant]
     Dates: start: 20080101
  5. TRAZODONE HCL [Concomitant]
     Route: 048
     Dates: end: 19970423
  6. SERTRALINE HYDROCHLORIDE [Concomitant]
     Route: 048
     Dates: end: 19970423

REACTIONS (4)
  - BLOOD CHOLESTEROL INCREASED [None]
  - DIABETES MELLITUS [None]
  - DIABETIC KETOACIDOSIS [None]
  - FATIGUE [None]
